FAERS Safety Report 8085211-9 (Version None)
Quarter: 2012Q1

REPORT INFORMATION
  Report Type: 
  Country: None (occurrence: None)
  Receive Date: 20120128
  Receipt Date: 20110328
  Transmission Date: 20120608
  Serious: No
  Sender: FDA-Public Use
  Company Number: US-ABBOTT-11P-163-0714969-00

PATIENT
  Sex: Female
  Weight: 76.272 kg

DRUGS (7)
  1. PREMARIN [Concomitant]
     Indication: HORMONE REPLACEMENT THERAPY
  2. METHOTREXATE [Suspect]
     Indication: ARTHRITIS REACTIVE
     Dates: end: 20100101
  3. METOPROLOL TARTRATE [Concomitant]
     Indication: HYPERTENSION
  4. PREVACID [Concomitant]
     Indication: GASTROOESOPHAGEAL REFLUX DISEASE
  5. HUMIRA [Suspect]
     Dates: start: 20110201
  6. METHOTREXATE [Suspect]
     Dates: start: 20100101
  7. HUMIRA [Suspect]
     Indication: ARTHRITIS REACTIVE
     Dates: start: 20101001, end: 20101211

REACTIONS (8)
  - PAIN [None]
  - MALAISE [None]
  - CHEILITIS [None]
  - STAPHYLOCOCCAL INFECTION [None]
  - LIP PAIN [None]
  - ALOPECIA [None]
  - ARTHRALGIA [None]
  - PRURITUS [None]
